FAERS Safety Report 9821398 (Version 2)
Quarter: 2014Q1

REPORT INFORMATION
  Report Type: Spontaneous
  Country: GB (occurrence: GB)
  Receive Date: 20140116
  Receipt Date: 20140116
  Transmission Date: 20141002
  Serious: Yes (Hospitalization)
  Sender: FDA-Public Use
  Company Number: GB-PFIZER INC-2013353164

PATIENT
  Age: 58 Year
  Sex: Female
  Weight: 54 kg

DRUGS (4)
  1. CARBOPLATIN [Suspect]
     Indication: NEOPLASM
     Dosage: 240 MG, 2X/DAY, 1 EVERY 3 WEEKS
     Route: 042
     Dates: start: 20130828
  2. CARBOPLATIN [Suspect]
     Dosage: 450 MG, UNK
     Route: 042
     Dates: end: 20131129
  3. MORPHINE SULFATE [Concomitant]
     Indication: ANALGESIC THERAPY
     Dosage: 90 MG, 2X/DAY
     Route: 048
     Dates: start: 20131202
  4. ORAMORPH [Concomitant]
     Indication: ANALGESIC THERAPY
     Dosage: 10 MG, AS NEEDED
     Route: 048
     Dates: start: 20131202, end: 20131202

REACTIONS (1)
  - Conjunctival haemorrhage [Recovered/Resolved]
